FAERS Safety Report 9289512 (Version 1)
Quarter: 2013Q2

REPORT INFORMATION
  Report Type: Spontaneous
  Country: GB (occurrence: GB)
  Receive Date: 20130515
  Receipt Date: 20130515
  Transmission Date: 20140414
  Serious: Yes (Hospitalization)
  Sender: FDA-Public Use
  Company Number: GB-ROCHE-1223905

PATIENT
  Sex: Female

DRUGS (1)
  1. HERCEPTIN [Suspect]
     Indication: PRODUCT USED FOR UNKNOWN INDICATION
     Route: 042
     Dates: end: 20130419

REACTIONS (5)
  - Dehydration [Unknown]
  - Diarrhoea [Unknown]
  - Malaise [Unknown]
  - Fatigue [Unknown]
  - Dyspnoea exertional [Unknown]
